FAERS Safety Report 24772552 (Version 2)
Quarter: 2024Q4

REPORT INFORMATION
  Report Type: Report from Study
  Country: KR (occurrence: KR)
  Receive Date: 20241224
  Receipt Date: 20241231
  Transmission Date: 20250114
  Serious: Yes (Hospitalization)
  Sender: ABBVIE
  Company Number: KR-PFIZER INC-PV202400165028

PATIENT
  Age: 52 Year
  Sex: Male
  Weight: 72.1 kg

DRUGS (5)
  1. AVIBACTAM SODIUM\CEFTAZIDIME [Suspect]
     Active Substance: AVIBACTAM SODIUM\CEFTAZIDIME
     Indication: Abdominal infection
     Dosage: TIME INTERVAL: 0.33333333 DAYS: 2.5 G, 3X/DAY (TID)
     Route: 042
     Dates: start: 20241031, end: 20241117
  2. LINAGLIPTIN\METFORMIN HYDROCHLORIDE [Concomitant]
     Active Substance: LINAGLIPTIN\METFORMIN HYDROCHLORIDE
     Indication: Diabetes mellitus
     Dosage: [LINAGLIPTIN 2.5 MG]/ METFORMIN HYDROCHLORIDE 1000 MG]
     Route: 048
     Dates: start: 20241202
  3. NORZYME [Concomitant]
     Indication: Dyspepsia
     Dosage: 457.7 MG
     Route: 048
     Dates: start: 20241128
  4. SODIUM ALGINATE [Concomitant]
     Active Substance: SODIUM ALGINATE
     Indication: Prophylaxis
     Dosage: 20 ML, SOLN
     Route: 048
     Dates: start: 20241129
  5. EZETIMIBE\ROSUVASTATIN [Concomitant]
     Active Substance: EZETIMIBE\ROSUVASTATIN
     Indication: Hyperlipidaemia
     Dosage: [EZETIMIBE 10 MG]/ ROSUVASTATIN CALCIUM 5 MG]
     Route: 048
     Dates: start: 20240703

REACTIONS (1)
  - Ileus [Recovered/Resolved]

NARRATIVE: CASE EVENT DATE: 20241205
